FAERS Safety Report 4432242-3 (Version None)
Quarter: 2004Q3

REPORT INFORMATION
  Report Type: 
  Country: None (occurrence: None)
  Receive Date: 20040820
  Receipt Date: 20040810
  Transmission Date: 20050211
  Serious: Yes (Death)
  Sender: FDA-Public Use
  Company Number: RS004648-J

PATIENT
  Age: 81 Year
  Sex: Male

DRUGS (6)
  1. PARIET (RABEPRAZOLE) (RABEPRAZOLE SODIUM) [Suspect]
     Indication: REFLUX OESOPHAGITIS
     Dosage: 10 MG, 1 IN 1 D, ORAL
     Route: 048
     Dates: start: 20040501, end: 20040729
  2. IRESSA [Suspect]
     Indication: NON-SMALL CELL LUNG CANCER
     Dosage: SEE IMAGE
     Route: 048
     Dates: start: 20020709, end: 20031122
  3. IRESSA [Suspect]
     Indication: NON-SMALL CELL LUNG CANCER
     Dosage: SEE IMAGE
     Route: 048
     Dates: start: 20040413, end: 20040430
  4. KRESTIN (POLYSACCHRIDE-K) [Suspect]
     Dosage: ORAL
     Route: 048
     Dates: start: 20040612, end: 20040716
  5. THEOLONG (THEOPHYLLINE) [Concomitant]
  6. LASIX [Concomitant]

REACTIONS (2)
  - ANAEMIA [None]
  - INTERSTITIAL LUNG DISEASE [None]
